FAERS Safety Report 23354086 (Version 1)
Quarter: 2024Q1

REPORT INFORMATION
  Report Type: Spontaneous
  Country: US (occurrence: None)
  Receive Date: 20240101
  Receipt Date: 20240101
  Transmission Date: 20240410
  Serious: No
  Sender: FDA-Public Use
  Company Number: 2023A286271

PATIENT

DRUGS (1)
  1. FASENRA [Suspect]
     Active Substance: BENRALIZUMAB
     Route: 058

REACTIONS (8)
  - Asthma [Unknown]
  - Hypersensitivity [Unknown]
  - COVID-19 [Unknown]
  - Mite allergy [Unknown]
  - Impaired quality of life [Unknown]
  - Seasonal allergy [Unknown]
  - Food allergy [Unknown]
  - Drug ineffective [Unknown]
